FAERS Safety Report 8323067-7 (Version None)
Quarter: 2012Q2

REPORT INFORMATION
  Report Type: 
  Country: None (occurrence: None)
  Receive Date: 20120430
  Receipt Date: 20120420
  Transmission Date: 20120825
  Serious: No
  Sender: FDA-Public Use
  Company Number: PHHY2012ME033426

PATIENT
  Sex: Female
  Weight: 28 kg

DRUGS (3)
  1. CEFTRIAXONE SODIUM [Suspect]
     Indication: TOOTH ABSCESS
     Route: 042
     Dates: start: 20120402, end: 20120402
  2. LEMOD SOLU [Concomitant]
  3. CRISTACILLIN [Concomitant]

REACTIONS (6)
  - COUGH [None]
  - RASH MACULAR [None]
  - EYELID OEDEMA [None]
  - ERYTHEMA [None]
  - EYE PRURITUS [None]
  - CONJUNCTIVAL HYPERAEMIA [None]
